FAERS Safety Report 7938983-5 (Version None)
Quarter: 2011Q4

REPORT INFORMATION
  Report Type: 
  Country: None (occurrence: None)
  Receive Date: 20111124
  Receipt Date: 20111122
  Transmission Date: 20120403
  Serious: No
  Sender: FDA-Public Use
  Company Number: US-PFIZER INC-2011286019

PATIENT
  Sex: Male

DRUGS (2)
  1. NEURONTIN [Suspect]
     Indication: NERVE COMPRESSION
     Dosage: 100 MG, 3X/DAY
  2. NEURONTIN [Suspect]
     Dosage: 200 MG, 3X/DAY

REACTIONS (4)
  - DIZZINESS [None]
  - FEELING ABNORMAL [None]
  - DRUG INEFFECTIVE [None]
  - PARAESTHESIA [None]
